FAERS Safety Report 12649335 (Version 1)
Quarter: 2016Q3

REPORT INFORMATION
  Report Type: Spontaneous
  Country: JP (occurrence: JP)
  Receive Date: 20160812
  Receipt Date: 20160812
  Transmission Date: 20161109
  Serious: Yes (Other)
  Sender: FDA-Public Use
  Company Number: JP-GILEAD-2016-0226087

PATIENT
  Age: 51 Year
  Sex: Male

DRUGS (6)
  1. BERAPROST [Concomitant]
     Active Substance: BERAPROST
  2. AMBRISENTAN [Suspect]
     Active Substance: AMBRISENTAN
     Indication: PULMONARY ARTERIAL HYPERTENSION
     Route: 065
  3. TADALAFIL [Concomitant]
     Active Substance: TADALAFIL
  4. TACROLIMUS. [Concomitant]
     Active Substance: TACROLIMUS
  5. TREPROSTINIL [Concomitant]
     Active Substance: TREPROSTINIL
  6. DOBUTAMINE [Concomitant]
     Active Substance: DOBUTAMINE\DOBUTAMINE HYDROCHLORIDE

REACTIONS (2)
  - Fluid retention [Unknown]
  - Venous oxygen saturation decreased [Recovered/Resolved]
